FAERS Safety Report 6363713-0 (Version None)
Quarter: 2009Q3

REPORT INFORMATION
  Report Type: 
  Country: None (occurrence: None)
  Receive Date: 20090919
  Receipt Date: 20090706
  Transmission Date: 20100115
  Serious: No
  Sender: FDA-Public Use
  Company Number: US-ABBOTT-09P-163-0583900-00

PATIENT
  Sex: Female
  Weight: 80.812 kg

DRUGS (5)
  1. HUMIRA [Suspect]
     Indication: RHEUMATOID ARTHRITIS
     Route: 058
     Dates: start: 20090501
  2. PREDNISONE [Concomitant]
     Indication: DRUG USE FOR UNKNOWN INDICATION
     Dosage: 20-30 MILLIGRAMS PER DAY
  3. ETODOLAC [Concomitant]
     Indication: ANTIINFLAMMATORY THERAPY
     Dosage: 2-3 X 500 MILLIGRAMS PER DAY
     Route: 048
  4. WELLBUTRIN [Concomitant]
     Indication: SMOKING CESSATION THERAPY
  5. UNKNOWN HIGH BLOOD PRESSURE MEDICATION [Concomitant]
     Indication: HYPERTENSION
     Dosage: 1 DOSAGE FORM

REACTIONS (1)
  - INAPPROPRIATE SCHEDULE OF DRUG ADMINISTRATION [None]
